FAERS Safety Report 25016687 (Version 3)
Quarter: 2025Q2

REPORT INFORMATION
  Report Type: Spontaneous
  Country: US (occurrence: US)
  Receive Date: 20250227
  Receipt Date: 20250617
  Transmission Date: 20250717
  Serious: No
  Sender: KYOWA
  Company Number: US-KYOWAKIRIN-2025KK003293

PATIENT

DRUGS (8)
  1. CRYSVITA [Suspect]
     Active Substance: BUROSUMAB-TWZA
     Indication: Hereditary hypophosphataemic rickets
     Dosage: 50 MG, 1X/4 WEEKS (INJECT ONE 30 MG VIAL AND ONE 20 MG VIAL (50 MG TOTAL)
     Route: 058
  2. CRYSVITA [Suspect]
     Active Substance: BUROSUMAB-TWZA
     Dosage: 50 MG, 1X/4 WEEKS (INJECT ONE 30 MG VIAL AND ONE 20 MG VIAL (50MG TOTAL) UNDER THE SKIN EVERY 4 WEEK
     Route: 058
  3. CRYSVITA [Suspect]
     Active Substance: BUROSUMAB-TWZA
     Dosage: 50 MG, 1X/4 WEEKS (ONE 30 MG VIAL AND ONE 20 MG VIAL (50 MG TOTAL) UNDER THE SKIN
     Route: 058
  4. CRYSVITA [Suspect]
     Active Substance: BUROSUMAB-TWZA
     Indication: Hereditary hypophosphataemic rickets
     Dosage: 50 MG, 1X/4 WEEKS (INJECT ONE 30 MG VIAL AND ONE 20 MG VIAL (50 MG TOTAL)
     Route: 058
  5. CRYSVITA [Suspect]
     Active Substance: BUROSUMAB-TWZA
     Dosage: 50 MG, 1X/4 WEEKS (INJECT ONE 30 MG VIAL AND ONE 20 MG VIAL (50MG TOTAL) UNDER THE SKIN EVERY 4 WEEK
     Route: 058
  6. CRYSVITA [Suspect]
     Active Substance: BUROSUMAB-TWZA
     Dosage: 50 MG, 1X/4 WEEKS (ONE 30 MG VIAL AND ONE 20 MG VIAL (50 MG TOTAL) UNDER THE SKIN)
     Route: 058
  7. EXCEDRIN MIGRAINE [Concomitant]
     Active Substance: ACETAMINOPHEN\ASPIRIN\CAFFEINE
     Indication: Product used for unknown indication
     Route: 065
  8. VITAMIN D3 [Concomitant]
     Active Substance: CHOLECALCIFEROL
     Indication: Product used for unknown indication
     Route: 065

REACTIONS (4)
  - Ear infection [Unknown]
  - Pain [Unknown]
  - Restless legs syndrome [Unknown]
  - Muscle spasms [Unknown]
